FAERS Safety Report 14918513 (Version 4)
Quarter: 2018Q2

REPORT INFORMATION
  Report Type: Spontaneous
  Country: US (occurrence: US)
  Receive Date: 20180521
  Receipt Date: 20180607
  Transmission Date: 20180711
  Serious: Yes (Death, Life-Threatening, Hospitalization, Disabling, Other)
  Sender: FDA-Public Use
  Company Number: US-BAUSCH-BL-2018-014654

PATIENT
  Age: 70 Year
  Sex: Male
  Weight: 81.72 kg

DRUGS (2)
  1. XIFAXAN [Suspect]
     Active Substance: RIFAXIMIN
     Route: 048
     Dates: start: 201803, end: 201804
  2. XIFAXAN [Suspect]
     Active Substance: RIFAXIMIN
     Indication: HEPATIC ENCEPHALOPATHY
     Dosage: QT 30
     Route: 048
     Dates: start: 201802, end: 2018

REACTIONS (7)
  - Disease complication [Fatal]
  - Hospice care [Unknown]
  - Inability to afford medication [Unknown]
  - General physical health deterioration [Unknown]
  - Fall [Unknown]
  - Hepatic cirrhosis [Fatal]
  - Fracture [Unknown]

NARRATIVE: CASE EVENT DATE: 2018
